FAERS Safety Report 9405914 (Version 3)
Quarter: 2015Q1

REPORT INFORMATION
  Report Type: Spontaneous
  Country: US (occurrence: US)
  Receive Date: 20130717
  Receipt Date: 20150213
  Transmission Date: 20150721
  Serious: Yes (Hospitalization, Other)
  Sender: FDA-Public Use
  Company Number: US-GLAXOSMITHKLINE-A1033627A

PATIENT
  Age: 62 Year
  Sex: Female

DRUGS (3)
  1. LAMICTAL [Suspect]
     Active Substance: LAMOTRIGINE
     Indication: DEPRESSION
     Dosage: 200 MG TABLET
     Route: 065
     Dates: start: 20121228
  2. LAMICTAL [Suspect]
     Active Substance: LAMOTRIGINE
     Indication: BIPOLAR DISORDER
     Dosage: 200 UNK, UNK
     Dates: start: 2001
  3. WELLBUTRIN SR [Concomitant]
     Active Substance: BUPROPION HYDROCHLORIDE
     Dates: start: 20091114

REACTIONS (7)
  - Therapy cessation [Unknown]
  - Activities of daily living impaired [Unknown]
  - Anxiety [Unknown]
  - Hip surgery [Unknown]
  - Migraine [Unknown]
  - Mental impairment [Unknown]
  - Formication [Unknown]

NARRATIVE: CASE EVENT DATE: 20130709
